FAERS Safety Report 17954316 (Version 1)
Quarter: 2020Q2

REPORT INFORMATION
  Report Type: Spontaneous
  Country: US (occurrence: US)
  Receive Date: 20200629
  Receipt Date: 20200629
  Transmission Date: 20200714
  Serious: No
  Sender: FDA-Public Use
  Company Number: US-JNJFOC-20200600320

PATIENT
  Sex: Female
  Weight: 55.84 kg

DRUGS (8)
  1. SILDENAFIL CITRATE. [Concomitant]
     Active Substance: SILDENAFIL CITRATE
     Indication: PRODUCT USED FOR UNKNOWN INDICATION
     Route: 065
  2. TYLENOL [Suspect]
     Active Substance: ACETAMINOPHEN
     Indication: HEADACHE
     Route: 065
  3. ACETYLSALICYLIC ACID W/CLOPIDOGREL [Concomitant]
     Active Substance: ASPIRIN\CLOPIDOGREL
     Indication: PRODUCT USED FOR UNKNOWN INDICATION
     Route: 065
  4. TYVASO [Concomitant]
     Active Substance: TREPROSTINIL
     Indication: PULMONARY ARTERIAL HYPERTENSION
     Dosage: 18-54 G (3-9 BREATHS) FOUR TIMES A DAY (QID)
     Dates: start: 20200203
  5. TYLENOL [Suspect]
     Active Substance: ACETAMINOPHEN
     Indication: PARANASAL SINUS DISCOMFORT
  6. OPSUMIT [Concomitant]
     Active Substance: MACITENTAN
     Indication: PRODUCT USED FOR UNKNOWN INDICATION
     Route: 065
  7. TYVASO [Concomitant]
     Active Substance: TREPROSTINIL
  8. TYVASO [Concomitant]
     Active Substance: TREPROSTINIL

REACTIONS (1)
  - Product use in unapproved indication [Unknown]
